FAERS Safety Report 9371627 (Version 1)
Quarter: 2013Q2

REPORT INFORMATION
  Report Type: Report from Study
  Country: AR (occurrence: AR)
  Receive Date: 20130627
  Receipt Date: 20130627
  Transmission Date: 20140414
  Serious: Yes (Other)
  Sender: FDA-Public Use
  Company Number: PHHY2013AR065476

PATIENT
  Sex: Male

DRUGS (3)
  1. ONBREZ [Suspect]
     Indication: CHRONIC OBSTRUCTIVE PULMONARY DISEASE
     Dates: start: 201212, end: 20130101
  2. ONBREZ [Suspect]
     Indication: OBSTRUCTIVE AIRWAYS DISORDER
  3. ONBREZ [Suspect]
     Indication: OFF LABEL USE

REACTIONS (2)
  - Bronchitis [Recovering/Resolving]
  - Inappropriate schedule of drug administration [Unknown]
